FAERS Safety Report 15088655 (Version 1)
Quarter: 2018Q2

REPORT INFORMATION
  Report Type: Report from Study
  Country: FR (occurrence: FR)
  Receive Date: 20180629
  Receipt Date: 20180629
  Transmission Date: 20180711
  Serious: Yes (Hospitalization)
  Sender: FDA-Public Use
  Company Number: FR-ACCORD-068864

PATIENT
  Age: 78 Year
  Sex: Female

DRUGS (5)
  1. CALCIUM LEVOFOLINATE [Suspect]
     Active Substance: LEVOLEUCOVORIN CALCIUM
     Indication: COLORECTAL CANCER METASTATIC
     Dosage: ON 26-AUG-2014 (CYCLE 6) AT THE DOSE OF 200 MG/M2
     Dates: start: 20131022
  2. AVASTIN [Suspect]
     Active Substance: BEVACIZUMAB
     Indication: COLORECTAL CANCER METASTATIC
     Dates: start: 20140613
  3. FLUOROURACIL. [Suspect]
     Active Substance: FLUOROURACIL
     Indication: COLORECTAL CANCER METASTATIC
     Route: 040
     Dates: start: 20131022
  4. OXALIPLATIN. [Suspect]
     Active Substance: OXALIPLATIN
     Indication: COLORECTAL CANCER METASTATIC
     Dates: start: 20140630
  5. KEPPRA [Concomitant]
     Active Substance: LEVETIRACETAM

REACTIONS (2)
  - Ill-defined disorder [Recovered/Resolved]
  - Hypercalcaemia [Recovered/Resolved]

NARRATIVE: CASE EVENT DATE: 20141001
